FAERS Safety Report 7033255-8 (Version None)
Quarter: 2010Q4

REPORT INFORMATION
  Report Type: 
  Country: None (occurrence: None)
  Receive Date: 20101007
  Receipt Date: 20101007
  Transmission Date: 20110411
  Serious: Yes (Death)
  Sender: FDA-Public Use
  Company Number: A0795122A

PATIENT
  Sex: Male
  Weight: 90 kg

DRUGS (11)
  1. ELTROMBOPAG [Suspect]
     Indication: THROMBOCYTOPENIA
     Dosage: 25MG PER DAY
     Route: 048
     Dates: start: 20090316, end: 20090405
  2. ELTROMBOPAG [Suspect]
     Dosage: 50MG PER DAY
     Route: 048
     Dates: start: 20090406, end: 20090627
  3. PEG-INTRON [Suspect]
     Dosage: 150MCG WEEKLY
     Route: 058
     Dates: start: 20090406, end: 20090627
  4. REBETOL [Suspect]
     Route: 048
     Dates: start: 20090406, end: 20090627
  5. DOCITON [Concomitant]
     Indication: PORTAL HYPERTENSION
     Dosage: 40MG PER DAY
     Route: 048
  6. ASPIRIN [Concomitant]
     Indication: PROPHYLAXIS
     Dosage: 100MG PER DAY
     Route: 048
  7. DEKRISTOL [Concomitant]
     Indication: VITAMIN D DEFICIENCY
     Dosage: 20000IU WEEKLY
     Route: 048
     Dates: start: 20090112
  8. XYLO-COMOD [Concomitant]
     Dosage: 1DROP SIX TIMES PER DAY
     Route: 047
     Dates: start: 20090602
  9. PROTAPHANE [Concomitant]
     Dosage: 14IU PER DAY
     Route: 058
  10. NOVORAPID [Concomitant]
     Route: 058
  11. INSULIN [Concomitant]

REACTIONS (2)
  - PNEUMONIA [None]
  - SUDDEN DEATH [None]
